FAERS Safety Report 25926242 (Version 1)
Quarter: 2025Q4

REPORT INFORMATION
  Report Type: Spontaneous
  Country: US (occurrence: None)
  Receive Date: 20251014
  Receipt Date: 20251014
  Transmission Date: 20260118
  Serious: Yes (Life-Threatening, Hospitalization, Disabling, Other)
  Sender: FDA-CTU
  Company Number: None

PATIENT
  Age: 48 Year
  Sex: Female
  Weight: 54 kg

DRUGS (10)
  1. WELLBUTRIN [Suspect]
     Active Substance: BUPROPION HYDROCHLORIDE
     Indication: Depression
     Dates: start: 20100101
  2. WELLBUTRIN [Suspect]
     Active Substance: BUPROPION HYDROCHLORIDE
     Indication: Anxiety
  3. WELLBUTRIN [Suspect]
     Active Substance: BUPROPION HYDROCHLORIDE
     Indication: Attention deficit hyperactivity disorder
  4. ATOMOXETINE [Suspect]
     Active Substance: ATOMOXETINE
  5. DULOXETINE [Suspect]
     Active Substance: DULOXETINE
     Indication: Depression
     Dates: start: 20100101
  6. DULOXETINE [Suspect]
     Active Substance: DULOXETINE
     Indication: Anxiety
  7. DULOXETINE [Suspect]
     Active Substance: DULOXETINE
     Indication: Attention deficit hyperactivity disorder
  8. LAMOTRIGINE [Concomitant]
     Active Substance: LAMOTRIGINE
  9. MIRTAZAPINE [Concomitant]
     Active Substance: MIRTAZAPINE
  10. SLEEP GUMMIES [Concomitant]
     Active Substance: AMINO ACIDS\BARLEY MALT

REACTIONS (24)
  - Tremor [None]
  - Palpitations [None]
  - Anxiety [None]
  - Withdrawal syndrome [None]
  - Electric shock sensation [None]
  - Depression [None]
  - Akathisia [None]
  - Restlessness [None]
  - Insomnia [None]
  - Paraesthesia [None]
  - Burning sensation [None]
  - Photophobia [None]
  - Hyperaesthesia [None]
  - Hyperacusis [None]
  - Suicidal ideation [None]
  - Anxiety [None]
  - Tremor [None]
  - Cognitive disorder [None]
  - Nightmare [None]
  - Pain [None]
  - Loss of personal independence in daily activities [None]
  - Road traffic accident [None]
  - Disturbance in attention [None]
  - Impaired work ability [None]

NARRATIVE: CASE EVENT DATE: 20241006
